FAERS Safety Report 23811829 (Version 1)
Quarter: 2024Q2

REPORT INFORMATION
  Report Type: Spontaneous
  Country: US (occurrence: US)
  Receive Date: 20240503
  Receipt Date: 20240503
  Transmission Date: 20240716
  Serious: No
  Sender: FDA-Public Use
  Company Number: US-UCBSA-2023025556

PATIENT
  Sex: Female

DRUGS (3)
  1. CIMZIA [Suspect]
     Active Substance: CERTOLIZUMAB PEGOL
     Indication: Psoriasis
     Dosage: 400 MILLIGRAM, EV 2 WEEKS(QOW)
     Route: 058
     Dates: start: 202304
  2. CIMZIA [Suspect]
     Active Substance: CERTOLIZUMAB PEGOL
     Indication: Psoriatic arthropathy
     Dosage: 400 MILLIGRAM, EV 4WEEKS(QOW), AT WEEKS 0, 2, 4
     Route: 058
     Dates: start: 202305
  3. CIMZIA [Suspect]
     Active Substance: CERTOLIZUMAB PEGOL
     Dosage: 200 MILLIGRAM, EV 4 WEEKS
     Route: 058
     Dates: start: 20230802

REACTIONS (9)
  - Psoriasis [Unknown]
  - Anxiety [Unknown]
  - Nausea [Unknown]
  - Vomiting [Unknown]
  - Diarrhoea [Unknown]
  - Impaired work ability [Unknown]
  - Back pain [Unknown]
  - Off label use [Unknown]
  - Therapeutic product effect incomplete [Unknown]

NARRATIVE: CASE EVENT DATE: 20230101
